FAERS Safety Report 22337143 (Version 5)
Quarter: 2023Q2

REPORT INFORMATION
  Report Type: Report from Study
  Country: CA (occurrence: CA)
  Receive Date: 20230518
  Receipt Date: 20230630
  Transmission Date: 20230722
  Serious: Yes (Life-Threatening)
  Sender: FDA-Public Use
  Company Number: CA-AMGEN-CANSL2022164355

PATIENT
  Age: 57 Year
  Sex: Female
  Weight: 99.6 kg

DRUGS (29)
  1. KYPROLIS [Suspect]
     Active Substance: CARFILZOMIB
     Indication: Plasma cell myeloma
     Dosage: DAY 1, 8, 15
     Route: 065
     Dates: start: 20220913
  2. KYPROLIS [Suspect]
     Active Substance: CARFILZOMIB
     Dosage: 147 MILLIGRAM
     Route: 065
     Dates: start: 20220920
  3. KYPROLIS [Suspect]
     Active Substance: CARFILZOMIB
     Dosage: 147 MILLIGRAM (DAY 1, 8, 15 )
     Route: 065
     Dates: start: 20220927
  4. KYPROLIS [Suspect]
     Active Substance: CARFILZOMIB
     Dosage: 150 MILLIGRAM( DAY 1, 8, 15 )
     Route: 065
     Dates: start: 20220928
  5. KYPROLIS [Suspect]
     Active Substance: CARFILZOMIB
     Dosage: 150 MILLIGRAM  DAY 1, 8, 15
     Route: 040
     Dates: start: 20221013
  6. KYPROLIS [Suspect]
     Active Substance: CARFILZOMIB
     Dosage: UNK
     Route: 040
  7. KYPROLIS [Suspect]
     Active Substance: CARFILZOMIB
     Dosage: 150 MILLIGRAM DAY 1, 8, 15
     Route: 040
     Dates: start: 20221020
  8. KYPROLIS [Suspect]
     Active Substance: CARFILZOMIB
     Dosage: 150 MILLIGRAM (DAY 1, 8, 15)
     Route: 040
     Dates: start: 20221110
  9. KYPROLIS [Suspect]
     Active Substance: CARFILZOMIB
     Dosage: 150 MILLIGRAM (DAY 1, 8, 15)
     Route: 040
     Dates: start: 20221110
  10. KYPROLIS [Suspect]
     Active Substance: CARFILZOMIB
     Dosage: 150 MILLIGRAM DAY 1, 8, 15
     Route: 040
     Dates: start: 20221117
  11. KYPROLIS [Suspect]
     Active Substance: CARFILZOMIB
     Dosage: 150 MILLIGRAM (DAY 1, 8, 15)
     Route: 040
     Dates: start: 20221124
  12. KYPROLIS [Suspect]
     Active Substance: CARFILZOMIB
     Dosage: 150 MILLIGRAM (DAY 1, 8, 15)
     Route: 040
  13. KYPROLIS [Suspect]
     Active Substance: CARFILZOMIB
     Dosage: 150 MILLIGRAM (DAY1,8,15)
     Route: 040
     Dates: start: 20221222
  14. KYPROLIS [Suspect]
     Active Substance: CARFILZOMIB
     Dosage: 150 MILLIGRAM  (DAY1,8,15 )
     Route: 040
     Dates: start: 20230105
  15. KYPROLIS [Suspect]
     Active Substance: CARFILZOMIB
     Dosage: 150 MILLIGRAM  (DAY1,8,15 )
     Route: 040
     Dates: start: 20230112
  16. KYPROLIS [Suspect]
     Active Substance: CARFILZOMIB
     Dosage: 150 MILLIGRAM  (DAY1,8,15 )
     Route: 040
     Dates: start: 20230119
  17. KYPROLIS [Suspect]
     Active Substance: CARFILZOMIB
     Dosage: 150 MILLIGRAM DAY 1, 8, 15
     Route: 040
     Dates: start: 20230202
  18. KYPROLIS [Suspect]
     Active Substance: CARFILZOMIB
     Dosage: 150 MILLIGRAM, CYCLE 6 INFUSION 21, DAY 1, 8, 15
     Route: 042
  19. KYPROLIS [Suspect]
     Active Substance: CARFILZOMIB
     Dosage: 150 MILLIGRAM DAY 1, 8, 15
     Route: 042
     Dates: start: 20230330
  20. KYPROLIS [Suspect]
     Active Substance: CARFILZOMIB
     Dosage: 150 MILLIGRAM DAY 1, 8, 15
     Route: 042
     Dates: start: 20230406
  21. KYPROLIS [Suspect]
     Active Substance: CARFILZOMIB
     Dosage: 120 MILLIGRAM DAY 1, 8, 15 (DOSE REDUCED)
     Route: 065
  22. KYPROLIS [Suspect]
     Active Substance: CARFILZOMIB
     Dosage: 120 MILLIGRAM DAY 1, 8, 15 (DOSE REDUCED)
     Route: 065
  23. KYPROLIS [Suspect]
     Active Substance: CARFILZOMIB
     Dosage: 120 MILLIGRAM DAY 1, 8, 15
     Route: 065
     Dates: start: 20230525
  24. KYPROLIS [Suspect]
     Active Substance: CARFILZOMIB
     Dosage: 120 MILLIGRAM DAY 1, 8, 15
     Route: 065
     Dates: start: 20230608
  25. KYPROLIS [Suspect]
     Active Substance: CARFILZOMIB
     Dosage: 120 MILLIGRAM DAY 1, 8, 15
     Route: 065
     Dates: start: 20230622
  26. LENALIDOMIDE [Concomitant]
     Active Substance: LENALIDOMIDE
     Indication: Product used for unknown indication
     Dosage: UNK
     Route: 048
  27. DEXAMETHASONE [Concomitant]
     Active Substance: DEXAMETHASONE
     Indication: Product used for unknown indication
     Dosage: 20 MILLIGRAM
     Route: 042
  28. DEXAMETHASONE [Concomitant]
     Active Substance: DEXAMETHASONE
     Dosage: 20 MILLIGRAM
     Route: 048
  29. DARZALEX [Concomitant]
     Active Substance: DARATUMUMAB
     Dosage: UNK
     Route: 065

REACTIONS (22)
  - Vomiting [Unknown]
  - Diarrhoea [Not Recovered/Not Resolved]
  - Fatigue [Not Recovered/Not Resolved]
  - Tremor [Unknown]
  - Asthenia [Unknown]
  - Depression [Recovered/Resolved]
  - Somnolence [Recovering/Resolving]
  - Decreased appetite [Not Recovered/Not Resolved]
  - Anxiety [Recovered/Resolved]
  - Dyspepsia [Recovering/Resolving]
  - Pain [Not Recovered/Not Resolved]
  - Nausea [Recovering/Resolving]
  - Malaise [Recovering/Resolving]
  - Dyspnoea [Recovered/Resolved]
  - Constipation [Not Recovered/Not Resolved]
  - Emotional distress [Unknown]
  - Off label use [Unknown]
  - Arthritis [Not Recovered/Not Resolved]
  - Restlessness [Unknown]
  - Night sweats [Unknown]
  - Feeling abnormal [Unknown]
  - General physical health deterioration [Not Recovered/Not Resolved]

NARRATIVE: CASE EVENT DATE: 20220101
